FAERS Safety Report 6725682-0 (Version None)
Quarter: 2010Q2

REPORT INFORMATION
  Report Type: 
  Country: None (occurrence: None)
  Receive Date: 20100513
  Receipt Date: 20100513
  Transmission Date: 20101027
  Serious: Yes (Disabling, Other)
  Sender: FDA-Public Use
  Company Number: None

PATIENT
  Age: 61 Year
  Sex: Female
  Weight: 58.9676 kg

DRUGS (2)
  1. PROZAC [Suspect]
     Indication: DEPRESSION
     Dates: start: 20000101, end: 20100110
  2. MAXALT [Suspect]
     Indication: MIGRAINE
     Dates: start: 19960101, end: 20100501

REACTIONS (4)
  - ANXIETY [None]
  - DEPRESSION [None]
  - MIGRAINE [None]
  - SEROTONIN SYNDROME [None]
